FAERS Safety Report 18958893 (Version 1)
Quarter: 2021Q1

REPORT INFORMATION
  Report Type: Spontaneous
  Country: US (occurrence: US)
  Receive Date: 20210302
  Receipt Date: 20210302
  Transmission Date: 20210420
  Serious: Yes (Hospitalization)
  Sender: FDA-Public Use
  Company Number: US-B.I. PHARMACEUTICALS,INC./RIDGEFIELD-2021-BI-085338

PATIENT
  Age: 47 Year
  Sex: Female

DRUGS (2)
  1. MIRAPEX ER [Suspect]
     Active Substance: PRAMIPEXOLE DIHYDROCHLORIDE
     Indication: RESTLESS LEGS SYNDROME
     Dosage: 2.5 MG EVERY NIGHT
     Route: 065
     Dates: start: 2006, end: 2020
  2. ZOLOFT [Concomitant]
     Active Substance: SERTRALINE HYDROCHLORIDE
     Indication: DEPRESSION
     Dosage: 100MG ONCE DAILY

REACTIONS (5)
  - Road traffic accident [Recovered/Resolved]
  - Arthritis [Recovering/Resolving]
  - Restless legs syndrome [Not Recovered/Not Resolved]
  - Intervertebral disc protrusion [Unknown]
  - Arthritis [Unknown]

NARRATIVE: CASE EVENT DATE: 2007
